FAERS Safety Report 10759672 (Version 2)
Quarter: 2015Q1

REPORT INFORMATION
  Report Type: Report from Study
  Country: AR (occurrence: AR)
  Receive Date: 20150203
  Receipt Date: 20150205
  Transmission Date: 20150721
  Serious: Yes (Hospitalization)
  Sender: FDA-Public Use
  Company Number: PHHY2015AR012065

PATIENT
  Sex: Male

DRUGS (8)
  1. ENALAPRIL [Concomitant]
     Active Substance: ENALAPRIL
     Indication: PRODUCT USED FOR UNKNOWN INDICATION
     Dosage: UNK
     Route: 065
  2. DIGOXIN. [Concomitant]
     Active Substance: DIGOXIN
     Indication: PRODUCT USED FOR UNKNOWN INDICATION
     Dosage: UNK
     Route: 065
  3. AMLODIPINE [Concomitant]
     Active Substance: AMLODIPINE BESYLATE
     Indication: PRODUCT USED FOR UNKNOWN INDICATION
     Dosage: UNK
     Route: 065
  4. EXELON PATCH [Suspect]
     Active Substance: RIVASTIGMINE
     Indication: DEMENTIA
     Dosage: 9.5 MG, QD (ONE PATCH OF 10CM2, DAILY)
     Route: 062
  5. LEVODOPA [Concomitant]
     Active Substance: LEVODOPA
     Indication: DEMENTIA
     Dosage: UNK
     Route: 065
  6. AMANTADINE [Concomitant]
     Active Substance: AMANTADINE
     Indication: DEMENTIA
     Route: 065
  7. PRAMIPEXOLE [Concomitant]
     Active Substance: PRAMIPEXOLE
     Indication: DEMENTIA
     Dosage: UNK
     Route: 065
  8. LEVOTHYROXINE [Concomitant]
     Active Substance: LEVOTHYROXINE
     Indication: PRODUCT USED FOR UNKNOWN INDICATION
     Dosage: UNK
     Route: 065

REACTIONS (2)
  - Pneumonia aspiration [Recovered/Resolved]
  - Cardiac failure [Recovered/Resolved with Sequelae]

NARRATIVE: CASE EVENT DATE: 2014
